FAERS Safety Report 10413325 (Version 2)
Quarter: 2014Q3

REPORT INFORMATION
  Report Type: Spontaneous
  Country: US (occurrence: US)
  Receive Date: 20140827
  Receipt Date: 20140827
  Transmission Date: 20150326
  Serious: Yes (Hospitalization)
  Sender: FDA-Public Use
  Company Number: US-GLAXOSMITHKLINE-A0730969A

PATIENT
  Sex: Male

DRUGS (1)
  1. AVANDIA [Suspect]
     Active Substance: ROSIGLITAZONE MALEATE
     Indication: TYPE 2 DIABETES MELLITUS
     Dosage: 4MG TWICE PER DAY
     Route: 048
     Dates: start: 1999, end: 20070128

REACTIONS (7)
  - Injury [Unknown]
  - Congestive cardiomyopathy [Unknown]
  - Myocardial infarction [Unknown]
  - Cardiac failure congestive [Not Recovered/Not Resolved]
  - Pain [Unknown]
  - Coronary artery disease [Unknown]
  - Ventricular fibrillation [Unknown]
